FAERS Safety Report 25811950 (Version 1)
Quarter: 2025Q3

REPORT INFORMATION
  Report Type: Spontaneous
  Country: US (occurrence: US)
  Receive Date: 20250917
  Receipt Date: 20250917
  Transmission Date: 20251021
  Serious: No
  Sender: MILLICENT HOLDINGS
  Company Number: US-Millicent Holdings Ltd.-MILL20250282

PATIENT
  Age: 51 Year
  Sex: Female

DRUGS (4)
  1. FEMRING [Suspect]
     Active Substance: ESTRADIOL ACETATE
     Indication: Menopause
     Route: 067
     Dates: start: 20250722
  2. FEMRING [Suspect]
     Active Substance: ESTRADIOL ACETATE
     Route: 067
     Dates: start: 2023
  3. ESTRADIOL [Concomitant]
     Active Substance: ESTRADIOL
     Indication: Menopause
     Route: 062
  4. ESTRADIOL [Concomitant]
     Active Substance: ESTRADIOL
     Route: 048

REACTIONS (2)
  - Therapeutic product effect decreased [Not Recovered/Not Resolved]
  - Off label use [Unknown]
